FAERS Safety Report 21979453 (Version 1)
Quarter: 2023Q1

REPORT INFORMATION
  Report Type: Spontaneous
  Country: US (occurrence: None)
  Receive Date: 20230208
  Receipt Date: 20230208
  Transmission Date: 20230417
  Serious: No
  Sender: FDA-Public Use
  Company Number: None

PATIENT
  Age: 76 Year
  Sex: Female
  Weight: 58.7 kg

DRUGS (21)
  1. SIROLIMUS [Suspect]
     Active Substance: SIROLIMUS
     Indication: Transplant
     Dosage: FREQUENCY : DAILY;?
     Route: 048
     Dates: start: 19990707
  2. PROLIA [Concomitant]
     Active Substance: DENOSUMAB
  3. SPIRONOLACTONE [Concomitant]
     Active Substance: SPIRONOLACTONE
  4. METOPROLOL ER [Concomitant]
  5. METOPROLOL ER SUCCINATE [Concomitant]
  6. ASPIRIN [Concomitant]
     Active Substance: ASPIRIN
  7. FAMOTIDINE [Concomitant]
     Active Substance: FAMOTIDINE
  8. RABEPRAZOLE [Concomitant]
  9. ROSUVASTATIN [Concomitant]
  10. PREDNISONE [Concomitant]
  11. METRONIDAZOLE TOPICAL LOTION [Concomitant]
  12. ZOVIRAX [Concomitant]
     Active Substance: ACYCLOVIR
  13. CLINDAMYCIN [Concomitant]
     Active Substance: CLINDAMYCIN
  14. LORATADINE [Concomitant]
  15. TUMS ULTRA ASST BERRY [Concomitant]
  16. UBIQUINOL [Concomitant]
     Active Substance: UBIQUINOL
  17. MAGNESIUM [Concomitant]
  18. VITAMIN C [Concomitant]
     Active Substance: ASCORBIC ACID
  19. MENAQUINONE 6 [Concomitant]
     Active Substance: MENAQUINONE 6
  20. VITAMIN D3 [Concomitant]
     Active Substance: CHOLECALCIFEROL
  21. ZINC [Concomitant]
     Active Substance: ZINC

REACTIONS (2)
  - Diarrhoea [None]
  - Diarrhoea [None]

NARRATIVE: CASE EVENT DATE: 20230206
